FAERS Safety Report 12823540 (Version 2)
Quarter: 2017Q1

REPORT INFORMATION
  Report Type: Spontaneous
  Country: US (occurrence: US)
  Receive Date: 20161006
  Receipt Date: 20170112
  Transmission Date: 20170428
  Serious: No
  Sender: FDA-Public Use
  Company Number: US-BAYER-2016-193120

PATIENT
  Age: 11 Year
  Sex: Female
  Weight: 52.61 kg

DRUGS (3)
  1. GADAVIST [Suspect]
     Active Substance: GADOBUTROL
     Indication: PRECOCIOUS PUBERTY
  2. GADAVIST [Suspect]
     Active Substance: GADOBUTROL
     Indication: BODY MASS INDEX INCREASED
     Dosage: UNK, ONCE
     Route: 042
     Dates: start: 20161211
  3. GADAVIST [Suspect]
     Active Substance: GADOBUTROL
     Indication: CYST
     Dosage: UNK, ONCE
     Route: 042
     Dates: start: 20161004, end: 20161004

REACTIONS (4)
  - Sneezing [Recovered/Resolved]
  - Urticaria [None]
  - Urticaria [Recovered/Resolved]
  - Dyspnoea [Recovered/Resolved]

NARRATIVE: CASE EVENT DATE: 20161004
